FAERS Safety Report 23973246 (Version 1)
Quarter: 2024Q2

REPORT INFORMATION
  Report Type: Spontaneous
  Country: FR (occurrence: BR)
  Receive Date: 20240613
  Receipt Date: 20240613
  Transmission Date: 20240716
  Serious: Yes (Hospitalization, Other)
  Sender: FDA-Public Use
  Company Number: FR-LUNDBECK-DKLU3065407

PATIENT

DRUGS (11)
  1. SABRIL [Suspect]
     Active Substance: VIGABATRIN
     Dosage: 1 DF, QD
     Dates: start: 20230614
  2. SABRIL [Suspect]
     Active Substance: VIGABATRIN
     Dosage: 2 DF, QD
  3. SABRIL [Suspect]
     Active Substance: VIGABATRIN
     Indication: Infantile spasms
  4. TIAPRIDE [Concomitant]
     Active Substance: TIAPRIDE
     Dosage: UNK
  5. TIAPRIDE [Concomitant]
     Active Substance: TIAPRIDE
     Indication: Product used for unknown indication
  6. VALPROATE [Concomitant]
     Active Substance: VALPROIC ACID
     Indication: Product used for unknown indication
     Dosage: 20MG/KG/DAY
  7. CAPTOPRIL [Concomitant]
     Active Substance: CAPTOPRIL
     Indication: Product used for unknown indication
  8. HYDROCHLOROTHIAZIDE [Concomitant]
     Active Substance: HYDROCHLOROTHIAZIDE
     Indication: Product used for unknown indication
  9. DIAZEPAM [Concomitant]
     Active Substance: DIAZEPAM
     Indication: Product used for unknown indication
     Dosage: UNK
  10. LEVOTHYROXINE [Concomitant]
     Active Substance: LEVOTHYROXINE\LEVOTHYROXINE SODIUM
     Indication: Product used for unknown indication
     Dosage: UNK
  11. PALIVIZUMAB [Concomitant]
     Active Substance: PALIVIZUMAB
     Indication: Product used for unknown indication
     Dosage: UNK
     Dates: start: 20130613

REACTIONS (9)
  - Seizure [Unknown]
  - Tremor [Unknown]
  - Lennox-Gastaut syndrome [Unknown]
  - Drug dependence [Unknown]
  - Dysphagia [Unknown]
  - Gastrooesophageal reflux disease [Unknown]
  - Condition aggravated [Unknown]
  - Muscle spasms [Unknown]
  - Poor quality product administered [Unknown]
